FAERS Safety Report 14569225 (Version 1)
Quarter: 2018Q1

REPORT INFORMATION
  Report Type: Spontaneous
  Country: US (occurrence: US)
  Receive Date: 20180220
  Receipt Date: 20180220
  Transmission Date: 20180509
  Serious: Yes (Other)
  Sender: FDA-Public Use
  Company Number: None

PATIENT
  Age: 58 Year
  Sex: Female
  Weight: 112.7 kg

DRUGS (15)
  1. LOPERAMIDE [Concomitant]
     Active Substance: LOPERAMIDE
     Dates: start: 20171010
  2. HYDRALAZINE [Concomitant]
     Active Substance: HYDRALAZINE HYDROCHLORIDE
     Dates: start: 20170815
  3. MACROBID [Concomitant]
     Active Substance: NITROFURANTOIN\NITROFURANTOIN MONOHYDRATE
     Dates: start: 20171011, end: 20171021
  4. CRANBERRY. [Concomitant]
     Active Substance: CRANBERRY
     Dates: start: 20170815
  5. CABOZANTINIB [Suspect]
     Active Substance: CABOZANTINIB
     Indication: RENAL CELL CARCINOMA
     Route: 048
     Dates: start: 20170825, end: 20180102
  6. BUDESONIDE/FORMORTEROL [Concomitant]
     Dates: start: 20170815
  7. PROVENTIL [Concomitant]
     Active Substance: ALBUTEROL
     Dates: start: 20170815
  8. BENZONATATE. [Concomitant]
     Active Substance: BENZONATATE
     Dates: start: 20170815
  9. CETIRIZINE [Concomitant]
     Active Substance: CETIRIZINE HYDROCHLORIDE
     Dates: start: 20170815
  10. METOPROLOL TARTRATE. [Concomitant]
     Active Substance: METOPROLOL TARTRATE
     Dates: start: 20170815
  11. LISINOPRIL. [Concomitant]
     Active Substance: LISINOPRIL
     Dates: start: 20170815
  12. DIPHENOXYLATE/ATROPINE [Concomitant]
     Active Substance: ATROPINE\DIPHENOXYLATE
     Dates: start: 20171101
  13. ALBUTEROL. [Concomitant]
     Active Substance: ALBUTEROL
     Dates: start: 20170815
  14. IBUPROFEN. [Concomitant]
     Active Substance: IBUPROFEN
     Dates: start: 20170815
  15. ONDANSETRON [Concomitant]
     Active Substance: ONDANSETRON
     Dates: start: 20170815

REACTIONS (4)
  - Blood creatine phosphokinase increased [None]
  - Therapy cessation [None]
  - Diarrhoea [None]
  - Muscle spasms [None]

NARRATIVE: CASE EVENT DATE: 20171214
